FAERS Safety Report 10149438 (Version 2)
Quarter: 2014Q3

REPORT INFORMATION
  Report Type: Spontaneous
  Country: US (occurrence: None)
  Receive Date: 20140430
  Receipt Date: 20140915
  Transmission Date: 20150326
  Serious: Yes (Hospitalization)
  Sender: FDA-Public Use
  Company Number: 2014-US-004043

PATIENT
  Age: 50 Year
  Sex: Female
  Weight: 60.8 kg

DRUGS (3)
  1. PRAMIPEXOLE [Concomitant]
     Active Substance: PRAMIPEXOLE
  2. RITALIN [Suspect]
     Active Substance: METHYLPHENIDATE HYDROCHLORIDE
     Indication: PRODUCT USED FOR UNKNOWN INDICATION
     Dates: start: 201402
  3. XYREM [Suspect]
     Active Substance: SODIUM OXYBATE
     Indication: NARCOLEPSY
     Route: 048
     Dates: start: 20140328, end: 20140408

REACTIONS (8)
  - Tremor [None]
  - Device deployment issue [None]
  - Condition aggravated [None]
  - Myoclonus [None]
  - Erythema [None]
  - Back pain [None]
  - Wrong technique in drug usage process [None]
  - Feeling hot [None]

NARRATIVE: CASE EVENT DATE: 201403
